FAERS Safety Report 6306484-6 (Version None)
Quarter: 2009Q3

REPORT INFORMATION
  Report Type: 
  Country: None (occurrence: None)
  Receive Date: 20090811
  Receipt Date: 20090811
  Transmission Date: 20100115
  Serious: Yes (Other)
  Sender: FDA-Public Use
  Company Number: None

PATIENT
  Age: 50 Year
  Sex: Male
  Weight: 80.7403 kg

DRUGS (1)
  1. VIAGRA [Suspect]
     Indication: HYPERTENSION
     Dosage: 100 MG ONCE A WEEK PO
     Route: 048
     Dates: start: 20030103, end: 20090806

REACTIONS (1)
  - HYPERTENSION [None]
